FAERS Safety Report 5267983-1 (Version None)
Quarter: 2007Q1

REPORT INFORMATION
  Report Type: 
  Country: None (occurrence: None)
  Receive Date: 20061214
  Receipt Date: 20060117
  Transmission Date: 20070707
  Serious: Yes (Other)
  Sender: FDA-Public Use
  Company Number: 2006009490

PATIENT
  Age: 23 Year
  Sex: Male
  Weight: 81.6475 kg

DRUGS (6)
  1. XANAX [Suspect]
     Indication: ANXIETY
     Dosage: 1 IN 1 D
     Dates: start: 20050101
  2. ALCOHOL (ETHANOL) [Suspect]
     Indication: ILL-DEFINED DISORDER
  3. AMBIEN [Suspect]
     Indication: INSOMNIA
     Dates: start: 20051201, end: 20051201
  4. ATIVAN [Suspect]
     Indication: HALLUCINATION
     Dates: start: 20051217
  5. ATIVAN [Suspect]
     Indication: MENTAL DISORDER
     Dates: start: 20051217
  6. MARIJUANA (CANNABIS) [Concomitant]

REACTIONS (7)
  - ANXIETY [None]
  - DRUG DEPENDENCE [None]
  - DRUG WITHDRAWAL SYNDROME [None]
  - FEELING DRUNK [None]
  - PARANOIA [None]
  - ROAD TRAFFIC ACCIDENT [None]
  - SUICIDAL IDEATION [None]
